FAERS Safety Report 21170389 (Version 2)
Quarter: 2022Q3

REPORT INFORMATION
  Report Type: Spontaneous
  Country: BE (occurrence: BE)
  Receive Date: 20220804
  Receipt Date: 20220819
  Transmission Date: 20221027
  Serious: Yes (Hospitalization)
  Sender: FDA-Public Use
  Company Number: BE-TEVA-2022-BE-2060150

PATIENT
  Age: 49 Year
  Sex: Male

DRUGS (1)
  1. TRAZODONE [Suspect]
     Active Substance: TRAZODONE HYDROCHLORIDE
     Indication: Intentional overdose
     Dosage: 5000 MILLIGRAM DAILY; FORMULATION: IMMEDIATE-RELEASE
     Route: 048

REACTIONS (3)
  - Cardiotoxicity [Not Recovered/Not Resolved]
  - Neurotoxicity [Recovering/Resolving]
  - Intentional overdose [Unknown]
